FAERS Safety Report 23293232 (Version 1)
Quarter: 2023Q4

REPORT INFORMATION
  Report Type: Spontaneous
  Country: US (occurrence: US)
  Receive Date: 20231213
  Receipt Date: 20231213
  Transmission Date: 20240110
  Serious: Yes (Hospitalization)
  Sender: FDA-Public Use
  Company Number: US-NOVOPROD-1010469

PATIENT
  Sex: Male

DRUGS (3)
  1. LEVEMIR [Suspect]
     Active Substance: INSULIN DETEMIR
     Indication: Product used for unknown indication
     Dosage: 50 UNITS(NIGHT)
     Route: 058
     Dates: end: 20221229
  2. LEVEMIR [Suspect]
     Active Substance: INSULIN DETEMIR
     Dosage: 50 UNITS(NIGHT)
     Route: 058
     Dates: end: 20221229
  3. LEVEMIR [Suspect]
     Active Substance: INSULIN DETEMIR
     Dosage: 50 UNITS(NIGHT)
     Route: 058
     Dates: end: 20221229

REACTIONS (1)
  - Rash pruritic [Unknown]
